FAERS Safety Report 21623895 (Version 2)
Quarter: 2023Q1

REPORT INFORMATION
  Report Type: Spontaneous
  Country: US (occurrence: US)
  Receive Date: 20221121
  Receipt Date: 20230320
  Transmission Date: 20230418
  Serious: No
  Sender: FDA-Public Use
  Company Number: US-KARYOPHARM-2022KPT001281

PATIENT

DRUGS (17)
  1. XPOVIO [Suspect]
     Active Substance: SELINEXOR
     Indication: Plasma cell myeloma
     Dosage: 60 MG, WEEKLY
     Route: 048
     Dates: start: 20220916, end: 2022
  2. XPOVIO [Suspect]
     Active Substance: SELINEXOR
     Dosage: 40 MG, WEEKLY
     Route: 048
     Dates: start: 2022, end: 202301
  3. ACYCLOVIR [Concomitant]
     Active Substance: ACYCLOVIR
  4. ALBUTEROL SULFATE [Concomitant]
     Active Substance: ALBUTEROL SULFATE
  5. AMARYL [Concomitant]
     Active Substance: GLIMEPIRIDE
  6. AMLODIPINE [Concomitant]
     Active Substance: AMLODIPINE BESYLATE
  7. BACTRIM DS [Concomitant]
     Active Substance: SULFAMETHOXAZOLE\TRIMETHOPRIM
  8. BENICAR [Concomitant]
     Active Substance: OLMESARTAN MEDOXOMIL
  9. DEXAMETHASONE [Concomitant]
     Active Substance: DEXAMETHASONE
  10. LIPITOR [Concomitant]
     Active Substance: ATORVASTATIN CALCIUM
  11. NALOXONE [Concomitant]
     Active Substance: NALOXONE
  12. OLANZAPINE [Concomitant]
     Active Substance: OLANZAPINE
  13. PIOGLITAZONE [Concomitant]
     Active Substance: PIOGLITAZONE
  14. POTASSIUM CHLORIDE [Concomitant]
     Active Substance: POTASSIUM CHLORIDE
  15. SYMBICORT [Concomitant]
     Active Substance: BUDESONIDE\FORMOTEROL FUMARATE DIHYDRATE
  16. TRAMADOL [Concomitant]
     Active Substance: TRAMADOL
  17. XALATAN [Concomitant]
     Active Substance: LATANOPROST

REACTIONS (5)
  - Peripheral swelling [Recovering/Resolving]
  - Swelling face [Recovering/Resolving]
  - Influenza [Recovered/Resolved]
  - Sinusitis [Unknown]
  - Platelet count decreased [Unknown]

NARRATIVE: CASE EVENT DATE: 20220101
